FAERS Safety Report 23354919 (Version 1)
Quarter: 2024Q1

REPORT INFORMATION
  Report Type: Spontaneous
  Country: US (occurrence: US)
  Receive Date: 20240101
  Receipt Date: 20240101
  Transmission Date: 20240410
  Serious: Yes (Other)
  Sender: FDA-Public Use
  Company Number: US-AUROBINDO-AUR-APL-2017-35014

PATIENT
  Age: 60 Year
  Sex: Female

DRUGS (3)
  1. QUINIDINE [Suspect]
     Active Substance: QUINIDINE
     Indication: Plasmodium falciparum infection
     Dosage: UNK
     Route: 065
  2. QUININE SULFATE [Suspect]
     Active Substance: QUININE SULFATE
     Indication: Plasmodium falciparum infection
     Dosage: UNK
     Route: 065
  3. DOXYCYCLINE [Concomitant]
     Active Substance: DOXYCYCLINE
     Indication: Plasmodium falciparum infection
     Dosage: UNK
     Route: 065

REACTIONS (2)
  - Electrocardiogram QT prolonged [Unknown]
  - Ototoxicity [Recovering/Resolving]
